FAERS Safety Report 9805509 (Version 1)
Quarter: 2014Q1

REPORT INFORMATION
  Report Type: Spontaneous
  Country: US (occurrence: None)
  Receive Date: 20140108
  Receipt Date: 20140108
  Transmission Date: 20141002
  Serious: Yes (Death)
  Sender: FDA-Public Use
  Company Number: None

PATIENT
  Age: 54 Year
  Sex: Male
  Weight: 85.5 kg

DRUGS (18)
  1. FERUMOXYTOL [Suspect]
     Indication: ANAEMIA
     Route: 042
  2. ZOLPIDEM [Concomitant]
  3. DIPHENHYDRAMINE [Concomitant]
  4. DULOXETINE [Concomitant]
  5. FERROUS SULFATE [Concomitant]
  6. PREGABALIN [Concomitant]
  7. MVI [Concomitant]
  8. NAPROSYN [Concomitant]
  9. NORCO [Concomitant]
  10. PANTOPRAZOLE [Concomitant]
  11. POTASSIUM [Concomitant]
  12. PROPRANOLOL [Concomitant]
  13. REPAGLINIDE [Concomitant]
  14. SODIUM BICARBONATE [Concomitant]
  15. WELLBUTRIN XL [Concomitant]
  16. ZANTAC [Concomitant]
  17. VITAMIN D [Concomitant]
  18. ASCORBIC ACID [Concomitant]

REACTIONS (1)
  - Unresponsive to stimuli [None]
